FAERS Safety Report 8298103-7 (Version None)
Quarter: 2012Q2

REPORT INFORMATION
  Report Type: 
  Country: None (occurrence: None)
  Receive Date: 20120419
  Receipt Date: 20120319
  Transmission Date: 20120825
  Serious: Yes (Other)
  Sender: FDA-Public Use
  Company Number: IL-BAXTER-2012BAX000618

PATIENT
  Sex: Female

DRUGS (7)
  1. FILGRASTIM [Suspect]
     Route: 065
  2. BLEOMYCIN-POWDER [Suspect]
     Route: 065
  3. PROCARBAZINE HYDROCHLORIDE [Suspect]
     Route: 065
  4. PREDNISONE TAB [Suspect]
     Route: 065
  5. DOXORUBICIN HCL [Suspect]
     Route: 065
  6. CYCLOPHOSPHAMIDE [Suspect]
     Route: 065
  7. VINCRISTINE SULFATE [Suspect]
     Route: 065

REACTIONS (2)
  - ABORTION SPONTANEOUS [None]
  - MATERNAL EXPOSURE BEFORE PREGNANCY [None]
